FAERS Safety Report 19038076 (Version 5)
Quarter: 2023Q1

REPORT INFORMATION
  Report Type: Spontaneous
  Country: US (occurrence: US)
  Receive Date: 20210322
  Receipt Date: 20230306
  Transmission Date: 20230418
  Serious: No
  Sender: FDA-Public Use
  Company Number: US-PFIZER INC-2021229055

PATIENT
  Age: 77 Year
  Sex: Female

DRUGS (2)
  1. BOSULIF [Suspect]
     Active Substance: BOSUTINIB MONOHYDRATE
     Indication: Chronic lymphocytic leukaemia
     Dosage: 400 MG
     Dates: start: 20210128, end: 20210222
  2. BOSULIF [Suspect]
     Active Substance: BOSUTINIB MONOHYDRATE
     Dosage: 100 MG, 3X/DAY (TAKE ONE TAB PO (PER ORALLY TID (THREE TIMES A DAY)
     Route: 048

REACTIONS (4)
  - Off label use [Unknown]
  - Product dose omission in error [Unknown]
  - Pyrexia [Unknown]
  - Nausea [Unknown]
